FAERS Safety Report 13515519 (Version 1)
Quarter: 2017Q2

REPORT INFORMATION
  Report Type: Spontaneous
  Country: HU (occurrence: HU)
  Receive Date: 20170504
  Receipt Date: 20170504
  Transmission Date: 20170830
  Serious: Yes (Life-Threatening, Hospitalization)
  Sender: FDA-Public Use
  Company Number: HU-ABBVIE-17P-076-1960528-00

PATIENT
  Age: 27 Year
  Sex: Male

DRUGS (1)
  1. VALPROIC ACID. [Suspect]
     Active Substance: VALPROIC ACID
     Indication: PRODUCT USED FOR UNKNOWN INDICATION
     Dosage: 135 GRAM
     Route: 048

REACTIONS (8)
  - Toxicity to various agents [Recovered/Resolved]
  - Brain oedema [Recovered/Resolved]
  - Atrial fibrillation [Recovered/Resolved]
  - Toxic encephalopathy [Recovered/Resolved]
  - Overdose [Recovered/Resolved]
  - Shock [Recovered/Resolved]
  - Bone marrow failure [Recovered/Resolved with Sequelae]
  - Hypernatraemia [Recovered/Resolved]
